FAERS Safety Report 15128154 (Version 1)
Quarter: 2018Q3

REPORT INFORMATION
  Report Type: Spontaneous
  Country: US (occurrence: US)
  Receive Date: 20180711
  Receipt Date: 20180711
  Transmission Date: 20181010
  Serious: No
  Sender: FDA-Public Use
  Company Number: US-ELI_LILLY_AND_COMPANY-US201807002682

PATIENT
  Age: 56 Year
  Sex: Male

DRUGS (6)
  1. BASAGLAR [Suspect]
     Active Substance: INSULIN GLARGINE
     Dosage: 41 U, UNKNOWN
     Route: 065
     Dates: start: 20180701
  2. BASAGLAR [Suspect]
     Active Substance: INSULIN GLARGINE
     Dosage: 73 U, UNKNOWN
     Route: 065
     Dates: start: 20180702
  3. BASAGLAR [Suspect]
     Active Substance: INSULIN GLARGINE
     Indication: PRODUCT USED FOR UNKNOWN INDICATION
     Dosage: 14 U, UNKNOWN
     Route: 065
     Dates: start: 20180630
  4. METFORMIN [Concomitant]
     Active Substance: METFORMIN HYDROCHLORIDE
     Indication: PRODUCT USED FOR UNKNOWN INDICATION
     Dosage: UNK
  5. LOVENOX [Concomitant]
     Active Substance: ENOXAPARIN SODIUM
     Indication: LIVER DISORDER
     Dosage: UNK
  6. BASAGLAR [Suspect]
     Active Substance: INSULIN GLARGINE
     Dosage: 97 U, UNKNOWN
     Route: 065
     Dates: start: 20180704

REACTIONS (1)
  - Incorrect dose administered [Unknown]

NARRATIVE: CASE EVENT DATE: 20180630
